FAERS Safety Report 5705658-2 (Version None)
Quarter: 2008Q2

REPORT INFORMATION
  Report Type: 
  Country: None (occurrence: None)
  Receive Date: 20080415
  Receipt Date: 20080403
  Transmission Date: 20081010
  Serious: Yes (Other)
  Sender: FDA-Public Use
  Company Number: DE-JNJFOC-20080400485

PATIENT
  Age: 25 Year
  Sex: Female

DRUGS (7)
  1. REMICADE [Suspect]
     Route: 042
  2. REMICADE [Suspect]
     Dosage: 3RD INFUSION 27FEB2008 OR 27MAR2008
     Route: 042
  3. REMICADE [Suspect]
     Route: 042
  4. REMICADE [Suspect]
     Indication: COLITIS ULCERATIVE
     Dosage: 1ST INFUSION
     Route: 042
  5. AZATHIOPRINE [Concomitant]
  6. SALOFALK [Concomitant]
  7. DECORTIN [Concomitant]

REACTIONS (2)
  - BLOOD AMYLASE INCREASED [None]
  - HERPES ZOSTER [None]
